FAERS Safety Report 8476777-5 (Version None)
Quarter: 2012Q2

REPORT INFORMATION
  Report Type: 
  Country: None (occurrence: None)
  Receive Date: 20120628
  Receipt Date: 20120626
  Transmission Date: 20120825
  Serious: Yes (Hospitalization, Disabling)
  Sender: FDA-Public Use
  Company Number: US-MERCK-1203USA03321

PATIENT
  Age: 51 Year
  Sex: Female
  Weight: 55 kg

DRUGS (8)
  1. FOSAMAX [Suspect]
     Indication: OSTEOPENIA
     Route: 048
     Dates: start: 19990405, end: 20100301
  2. FOSAMAX [Suspect]
     Route: 048
     Dates: end: 20100301
  3. FOSAMAX [Suspect]
     Route: 048
     Dates: end: 20100301
  4. FOSAMAX PLUS D [Suspect]
     Route: 048
     Dates: start: 20070101, end: 20090522
  5. ALENDRONATE SODIUM [Suspect]
     Indication: OSTEOPOROSIS
     Route: 048
     Dates: start: 20090523, end: 20100601
  6. FOSAMAX [Suspect]
     Indication: OSTEOPOROSIS
     Route: 048
     Dates: start: 19990405, end: 20100301
  7. ALENDRONATE SODIUM [Suspect]
     Indication: OSTEOPENIA
     Route: 048
     Dates: start: 20090523, end: 20100601
  8. FOSAMAX PLUS D [Suspect]
     Indication: OSTEOPOROSIS
     Route: 048

REACTIONS (59)
  - ANAEMIA [None]
  - HEPATIC STEATOSIS [None]
  - NEUROPATHY PERIPHERAL [None]
  - VITAMIN D DECREASED [None]
  - LIVER FUNCTION TEST ABNORMAL [None]
  - NERVOUS SYSTEM DISORDER [None]
  - FOOT FRACTURE [None]
  - DIABETES MELLITUS [None]
  - UPPER RESPIRATORY TRACT INFECTION [None]
  - WEIGHT INCREASED [None]
  - MIGRAINE [None]
  - HYPOTENSION [None]
  - CARDIOVASCULAR DECONDITIONING [None]
  - RECTAL POLYP [None]
  - INTERVERTEBRAL DISC PROTRUSION [None]
  - URINARY TRACT INFECTION [None]
  - FEMUR FRACTURE [None]
  - LOW TURNOVER OSTEOPATHY [None]
  - CONJUNCTIVITIS [None]
  - TINNITUS [None]
  - WHEEZING [None]
  - VERTEBRAL FORAMINAL STENOSIS [None]
  - LARYNGITIS [None]
  - FATIGUE [None]
  - MYOCARDIAL INFARCTION [None]
  - OSTEOPOROSIS [None]
  - ATRIOVENTRICULAR BLOCK SECOND DEGREE [None]
  - ARTHRALGIA [None]
  - STRESS URINARY INCONTINENCE [None]
  - INGROWING NAIL [None]
  - HYPOTHYROIDISM [None]
  - OSTEOARTHRITIS [None]
  - HAEMATOCHEZIA [None]
  - GASTROOESOPHAGEAL REFLUX DISEASE [None]
  - GASTROINTESTINAL DISORDER [None]
  - CARDIOMYOPATHY [None]
  - STRESS FRACTURE [None]
  - HYPOPHOSPHATAEMIA [None]
  - CONSTIPATION [None]
  - DERMATITIS [None]
  - INTERVERTEBRAL DISC DEGENERATION [None]
  - CORONARY ARTERY DISEASE [None]
  - ATROPHIC VULVOVAGINITIS [None]
  - CYSTITIS [None]
  - GAIT DISTURBANCE [None]
  - COUGH [None]
  - HYPERTENSION [None]
  - HAEMORRHOIDS [None]
  - COMPRESSION FRACTURE [None]
  - ASTHMA [None]
  - HAEMATOMA [None]
  - PNEUMONIA [None]
  - SPINAL COLUMN STENOSIS [None]
  - DERMAL CYST [None]
  - MYOPATHY [None]
  - MUSCULAR WEAKNESS [None]
  - LIPIDS INCREASED [None]
  - HYPERCHOLESTEROLAEMIA [None]
  - BRONCHITIS [None]
